FAERS Safety Report 4887302-X (Version None)
Quarter: 2005Q4

REPORT INFORMATION
  Report Type: 
  Country: None (occurrence: None)
  Receive Date: 20051220
  Receipt Date: 20050609
  Transmission Date: 20060501
  Serious: Yes (Other)
  Sender: FDA-Public Use
  Company Number: HQWYE621623JUN05

PATIENT
  Age: 42 Year
  Sex: Female
  Weight: 57.66 kg

DRUGS (7)
  1. EFFEXOR XR [Suspect]
     Dosage: SEE IMAGE
     Dates: start: 20040726
  2. MULTIVITAMINS (ASCORBIC ACID/ERGOCALCIFEROL/FOLIC ACID/NICOTINAMIDE/PA [Concomitant]
  3. VITAMIN E [Concomitant]
  4. VITAMIN C (ASCORBIC ACID) [Concomitant]
  5. CHONDROITIN SULFATE SODIUM (CHONDROITIN SULFATE SODIUM) [Concomitant]
  6. CALCIUM (CALCIUM) [Concomitant]
  7. ORTHO-NOVUM [Concomitant]

REACTIONS (2)
  - MYDRIASIS [None]
  - PUPILS UNEQUAL [None]
